FAERS Safety Report 8877159 (Version 1)
Quarter: 2012Q4

REPORT INFORMATION
  Report Type: 
  Country: CA (occurrence: CA)
  Receive Date: 20121030
  Receipt Date: 20121030
  Transmission Date: 20130627
  Serious: Yes (Other)
  Sender: FDA-Public Use
  Company Number: CA-B.I. PHARMACEUTICALS,INC./RIDGEFIELD-2012-EU-05320GD

PATIENT
  Age: 76 Year
  Sex: Female

DRUGS (3)
  1. DABIGATRAN ETEXILATE [Suspect]
     Indication: ATRIAL FIBRILLATION
     Dosage: 300 mg
     Route: 048
  2. DABIGATRAN ETEXILATE [Suspect]
     Indication: PROPHYLAXIS
  3. DABIGATRAN ETEXILATE [Suspect]
     Indication: CEREBROVASCULAR ACCIDENT

REACTIONS (3)
  - Melaena [Unknown]
  - Fatigue [Unknown]
  - Pallor [Unknown]
